FAERS Safety Report 21589125 (Version 1)
Quarter: 2022Q4

REPORT INFORMATION
  Report Type: Spontaneous
  Country: CN (occurrence: CN)
  Receive Date: 20221114
  Receipt Date: 20221114
  Transmission Date: 20230112
  Serious: Yes (Other)
  Sender: FDA-Public Use
  Company Number: CN-HALEON-CNCH2022APC043964

PATIENT

DRUGS (2)
  1. IBUPROFEN [Suspect]
     Active Substance: IBUPROFEN
     Indication: Gingival pain
     Dosage: 1 DF, BID
     Route: 048
     Dates: start: 20221108, end: 20221109
  2. IBUPROFEN [Suspect]
     Active Substance: IBUPROFEN
     Indication: Gingivitis

REACTIONS (9)
  - Pruritus [Recovered/Resolved]
  - Rash [Recovering/Resolving]
  - Palpitations [Recovering/Resolving]
  - Muscular weakness [Recovering/Resolving]
  - Drug hypersensitivity [Recovering/Resolving]
  - Blood pressure decreased [Recovering/Resolving]
  - Sinus tachycardia [Recovering/Resolving]
  - Heart rate increased [Recovering/Resolving]
  - Product use in unapproved indication [Unknown]

NARRATIVE: CASE EVENT DATE: 20221108
